FAERS Safety Report 7907104-7 (Version None)
Quarter: 2011Q4

REPORT INFORMATION
  Report Type: 
  Country: None (occurrence: None)
  Receive Date: 20111110
  Receipt Date: 20110404
  Transmission Date: 20120403
  Serious: No
  Sender: FDA-Public Use
  Company Number: US-ASTRAZENECA-2011SE19080

PATIENT

DRUGS (3)
  1. ENALAPRIL MALEATE [Concomitant]
  2. LISINOPRIL [Suspect]
     Route: 048
  3. CRESTOR [Concomitant]

REACTIONS (1)
  - DRUG INTOLERANCE [None]
